FAERS Safety Report 7125405-X (Version None)
Quarter: 2010Q4

REPORT INFORMATION
  Report Type: 
  Country: None (occurrence: None)
  Receive Date: 20101129
  Receipt Date: 20101118
  Transmission Date: 20110411
  Serious: Yes (Hospitalization)
  Sender: FDA-Public Use
  Company Number: US-JNJFOC-20101106753

PATIENT
  Sex: Female

DRUGS (9)
  1. DOXIL [Suspect]
     Indication: OVARIAN CANCER
     Dosage: CYCLE 2-DAY 1 OF 28 DAY CYCLE-75MG IN TOTAL
     Route: 042
  2. DOXIL [Suspect]
     Dosage: DAY 1 OF 28 DAY CYCLE
     Route: 042
  3. IMC-3G3 (RH ANTI-PDGFRA MAB) [Suspect]
     Indication: OVARIAN CANCER
     Route: 042
  4. IMC-3G3 (RH ANTI-PDGFRA MAB) [Suspect]
     Dosage: CYCLE 3-1640MG IN TOTAL DAYS 1 AND 15 OF 28 DAY CYCLE
     Route: 042
  5. IMC-3G3 (RH ANTI-PDGFRA MAB) [Suspect]
     Route: 042
  6. BUPROPION HYDROCHLORIDE [Concomitant]
  7. CITALOPRAM [Concomitant]
  8. LORAZEPAM [Concomitant]
  9. NIFEDIPINE [Concomitant]

REACTIONS (1)
  - SMALL INTESTINAL OBSTRUCTION [None]
